FAERS Safety Report 4354235-7 (Version None)
Quarter: 2004Q2

REPORT INFORMATION
  Report Type: 
  Country: None (occurrence: None)
  Receive Date: 20040506
  Receipt Date: 20040423
  Transmission Date: 20050107
  Serious: Yes (Hospitalization)
  Sender: FDA-Public Use
  Company Number: FR-GLAXOSMITHKLINE-B0331089A

PATIENT
  Age: 73 Year
  Sex: Female

DRUGS (12)
  1. DEROXAT [Suspect]
     Dosage: 20MG PER DAY
     Route: 048
     Dates: start: 20040123, end: 20040204
  2. ERYTHROCINE [Suspect]
     Dosage: 4000MG PER DAY
     Route: 048
     Dates: start: 20040123, end: 20040204
  3. COUMADIN [Suspect]
     Dosage: 5MG PER DAY
     Route: 048
     Dates: end: 20040219
  4. RENITEC [Concomitant]
     Dosage: 2UNIT PER DAY
     Route: 048
  5. LODOZ [Concomitant]
     Route: 048
  6. LASIX [Concomitant]
     Dosage: 40MG PER DAY
     Route: 048
  7. LEVOTHYROXINE SODIUM [Concomitant]
     Dosage: 75MCG PER DAY
     Route: 048
  8. DIGOXIN [Concomitant]
     Dosage: 1UNIT PER DAY
     Route: 048
  9. TRINITRINE [Concomitant]
     Dosage: 5MG PER DAY
  10. ALLOPURINOL TAB [Concomitant]
     Dosage: 300MG PER DAY
     Route: 048
  11. ROCEPHIN [Concomitant]
     Indication: SYSTEMIC ANTIBACTERIAL THERAPY
     Dates: end: 20040204
  12. TANGANIL [Concomitant]

REACTIONS (5)
  - ABDOMINAL PAIN [None]
  - DRUG INTERACTION [None]
  - HAEMATOMA [None]
  - INTERNATIONAL NORMALISED RATIO INCREASED [None]
  - PROTHROMBIN TIME PROLONGED [None]
